FAERS Safety Report 16373780 (Version 1)
Quarter: 2019Q2

REPORT INFORMATION
  Report Type: Spontaneous
  Country: US (occurrence: US)
  Receive Date: 20190530
  Receipt Date: 20190530
  Transmission Date: 20190711
  Serious: Yes (Other)
  Sender: FDA-Public Use
  Company Number: US-MYLANLABS-2019M1049363

PATIENT
  Sex: Female
  Weight: 70 kg

DRUGS (1)
  1. TAMOXIFEN CITRATE TABLETS, USP [Suspect]
     Active Substance: TAMOXIFEN
     Indication: INTRADUCTAL PROLIFERATIVE BREAST LESION
     Dosage: 20 MILLIGRAM, QD IN THE EVENING
     Route: 048
     Dates: start: 201604, end: 2019

REACTIONS (5)
  - Deposit eye [Not Recovered/Not Resolved]
  - Weight increased [Not Recovered/Not Resolved]
  - Menopause [Not Recovered/Not Resolved]
  - Hot flush [Not Recovered/Not Resolved]
  - Retinal detachment [Not Recovered/Not Resolved]
